FAERS Safety Report 8949611 (Version 6)
Quarter: 2013Q3

REPORT INFORMATION
  Report Type: Spontaneous
  Country: CN (occurrence: CN)
  Receive Date: 20121206
  Receipt Date: 20130920
  Transmission Date: 20140515
  Serious: Yes (Hospitalization, Other)
  Sender: FDA-Public Use
  Company Number: PHHY2012CN109607

PATIENT
  Age: 42 Year
  Sex: Male

DRUGS (7)
  1. SEBIVO [Suspect]
     Indication: CHRONIC HEPATITIS B
     Dosage: 600 MG PER DAY
     Route: 048
     Dates: start: 201203
  2. SEBIVO [Suspect]
     Dosage: UNK UKN, UNK
     Dates: start: 20121020, end: 20121117
  3. ADEFOVIR DIPIVOXIL [Concomitant]
     Indication: CHRONIC HEPATITIS B
     Dosage: UNK UKN, UNK
     Route: 048
     Dates: start: 20121020
  4. ENTECAVIR [Concomitant]
  5. LORATADINE [Concomitant]
     Indication: ANXIETY DISORDER
  6. LORAZEPAM [Concomitant]
     Indication: ANXIETY DISORDER
     Route: 048
  7. LAMIVUDINE [Concomitant]
     Indication: CHRONIC HEPATITIS B
     Dates: start: 20121117, end: 20121120

REACTIONS (26)
  - Dyspepsia [Unknown]
  - Hepatic steatosis [Unknown]
  - Aspartate aminotransferase increased [Unknown]
  - Alanine aminotransferase increased [Unknown]
  - Rhabdomyolysis [Unknown]
  - Myositis [Unknown]
  - Blood uric acid increased [Unknown]
  - Myalgia [Recovering/Resolving]
  - Muscular weakness [Not Recovered/Not Resolved]
  - Blood lactate dehydrogenase increased [Unknown]
  - Blood lactic acid increased [Unknown]
  - Myoglobin blood increased [Unknown]
  - Blood creatine phosphokinase increased [Unknown]
  - Myoglobinuria [Unknown]
  - Musculoskeletal stiffness [Unknown]
  - Pain in extremity [Not Recovered/Not Resolved]
  - Myoglobinaemia [Unknown]
  - Decreased appetite [Unknown]
  - Weight decreased [Unknown]
  - Stress [Unknown]
  - Asthenia [Unknown]
  - Chest pain [Unknown]
  - Hypoaesthesia [Not Recovered/Not Resolved]
  - Fatigue [Unknown]
  - Nausea [Unknown]
  - Pain [Not Recovered/Not Resolved]
